FAERS Safety Report 11929575 (Version 1)
Quarter: 2016Q1

REPORT INFORMATION
  Report Type: Spontaneous
  Country: US (occurrence: None)
  Receive Date: 20160119
  Receipt Date: 20160119
  Transmission Date: 20160526
  Serious: Yes (Other)
  Sender: FDA-Public Use
  Company Number: None

PATIENT
  Age: 39 Year
  Sex: Female
  Weight: 81.65 kg

DRUGS (11)
  1. DURICEF [Suspect]
     Active Substance: CEFADROXIL
     Indication: KNEE ARTHROPLASTY
     Route: 048
     Dates: start: 20151112
  2. PARAFON FORTE [Concomitant]
     Active Substance: CHLORZOXAZONE
  3. TOPAMAX [Concomitant]
     Active Substance: TOPIRAMATE
  4. PRILOSEC [Concomitant]
     Active Substance: OMEPRAZOLE MAGNESIUM
  5. TRIHEXPHEN [Concomitant]
  6. VITAMIN B12 [Concomitant]
     Active Substance: CYANOCOBALAMIN
  7. XARELTO [Concomitant]
     Active Substance: RIVAROXABAN
  8. VITAMIN D [Concomitant]
     Active Substance: CHOLECALCIFEROL
  9. QUININE SULFATE. [Concomitant]
     Active Substance: QUININE SULFATE
  10. ZANAFLEX [Concomitant]
     Active Substance: TIZANIDINE HYDROCHLORIDE
  11. DURICEF [Suspect]
     Active Substance: CEFADROXIL
     Indication: POSTOPERATIVE CARE
     Route: 048
     Dates: start: 20151112

REACTIONS (1)
  - Clostridium test positive [None]

NARRATIVE: CASE EVENT DATE: 20151209
